FAERS Safety Report 25994051 (Version 2)
Quarter: 2025Q4

REPORT INFORMATION
  Report Type: Spontaneous
  Country: CN (occurrence: CN)
  Receive Date: 20251104
  Receipt Date: 20251110
  Transmission Date: 20260117
  Serious: Yes (Death, Life-Threatening, Disabling, Other)
  Sender: JOHNSON AND JOHNSON
  Company Number: CN-JNJFOC-20251036249

PATIENT

DRUGS (2)
  1. TRACLEER [Suspect]
     Active Substance: BOSENTAN
     Indication: Product used for unknown indication
     Route: 065
  2. AMBRISENTAN [Concomitant]
     Active Substance: AMBRISENTAN
     Indication: Product used for unknown indication

REACTIONS (57)
  - Death [Fatal]
  - Adverse event [Fatal]
  - Adverse event [Unknown]
  - Respiratory failure [Unknown]
  - Pulmonary oedema [Unknown]
  - Hypoxia [Unknown]
  - Acute respiratory failure [Unknown]
  - Pneumonia [Unknown]
  - Sepsis [Unknown]
  - Atrial fibrillation [Unknown]
  - Syncope [Unknown]
  - Gastrointestinal haemorrhage [Unknown]
  - Disease progression [Unknown]
  - Adverse event [Unknown]
  - Adverse event [Unknown]
  - Adverse event [Unknown]
  - Ascites [Unknown]
  - Pericardial effusion [Unknown]
  - Cardiac arrest [Unknown]
  - Dyspnoea [Unknown]
  - Cough [Unknown]
  - Chronic obstructive pulmonary disease [Unknown]
  - Dyspnoea exertional [Unknown]
  - Lung disorder [Unknown]
  - Pleural effusion [Unknown]
  - Nasal congestion [Unknown]
  - Productive cough [Unknown]
  - Chest pain [Unknown]
  - Oedema peripheral [Unknown]
  - Oedema [Unknown]
  - Urinary tract infection [Unknown]
  - Influenza [Unknown]
  - Bronchitis [Unknown]
  - Cardiac disorder [Unknown]
  - Aspartate aminotransferase increased [Unknown]
  - Oxygen saturation decreased [Unknown]
  - Blood bilirubin increased [Unknown]
  - Haemoglobin decreased [Unknown]
  - Blood potassium decreased [Unknown]
  - Fluid retention [Unknown]
  - Dehydration [Unknown]
  - Hypervolaemia [Unknown]
  - Hypotension [Unknown]
  - Product use issue [Unknown]
  - Anaemia [Unknown]
  - Pain in jaw [Unknown]
  - Cellulitis [Unknown]
  - Haemoptysis [Unknown]
  - Hypoacusis [Unknown]
  - Viral infection [Unknown]
  - Alanine aminotransferase increased [Unknown]
  - Liver function test abnormal [Unknown]
  - Blood alkaline phosphatase increased [Unknown]
  - Hepatic enzyme increased [Unknown]
  - Gamma-glutamyltransferase increased [Unknown]
  - Renal disorder [Unknown]
  - Exposure during pregnancy [Unknown]
